FAERS Safety Report 21082024 (Version 1)
Quarter: 2022Q3

REPORT INFORMATION
  Report Type: Report from Study
  Country: EG (occurrence: EG)
  Receive Date: 20220714
  Receipt Date: 20220714
  Transmission Date: 20221027
  Serious: Yes (Other)
  Sender: FDA-Public Use
  Company Number: EG-BAYER-2022A095066

PATIENT
  Sex: Male

DRUGS (4)
  1. EYLEA [Suspect]
     Active Substance: AFLIBERCEPT
     Indication: Retinal vein occlusion
     Dosage: 1 DF, ONCE; RIGHT EYE; 1 DF, ONCE; RIGHT EYE; SOLUTION FOR INJECTION
     Route: 031
     Dates: start: 20201209, end: 20201209
  2. EYLEA [Suspect]
     Active Substance: AFLIBERCEPT
     Dosage: 1 DF, ONCE; RIGHT EYE; 1 DF, ONCE; RIGHT EYE; SOLUTION FOR INJECTION
     Route: 031
  3. EYLEA [Suspect]
     Active Substance: AFLIBERCEPT
     Dosage: 1 DF, ONCE; RIGHT EYE; 1 DF, ONCE; RIGHT EYE; SOLUTION FOR INJECTION
     Route: 031
     Dates: start: 202108, end: 202108
  4. EYLEA [Suspect]
     Active Substance: AFLIBERCEPT
     Dosage: 1 DF, ONCE; RIGHT EYE; 1 DF, ONCE; RIGHT EYE; SOLUTION FOR INJECTION
     Route: 031
     Dates: start: 20220116, end: 20220116

REACTIONS (7)
  - Optic nerve disorder [Not Recovered/Not Resolved]
  - Hand fracture [Not Recovered/Not Resolved]
  - Retinal artery occlusion [Not Recovered/Not Resolved]
  - Vision blurred [Not Recovered/Not Resolved]
  - Inappropriate schedule of product administration [Unknown]
  - Fall [Unknown]
  - Fatigue [Unknown]

NARRATIVE: CASE EVENT DATE: 20201209
